FAERS Safety Report 7417512-9 (Version None)
Quarter: 2011Q2

REPORT INFORMATION
  Report Type: 
  Country: None (occurrence: None)
  Receive Date: 20110408
  Receipt Date: 20110328
  Transmission Date: 20111010
  Serious: Yes (Death)
  Sender: FDA-Public Use
  Company Number: TPA2011A00950

PATIENT
  Age: 82 Year
  Sex: Female

DRUGS (11)
  1. MULTIVITAMIN (ERGOCALCIFEROL, ASCORBIC ACID, FOLIC ACID, THIAMINE HYDR [Concomitant]
  2. BENAZEPRIL HYDROCHLORIDE [Concomitant]
  3. LANTUS INSULIN (INSULIN) [Concomitant]
  4. LIPITOR [Concomitant]
  5. LASIX [Concomitant]
  6. TYLENOL #3 (PARACETAMOL) [Concomitant]
  7. TAZTIA-XT (DILTIAZEM HYDROCHLORIDE) [Concomitant]
  8. DOCUSATE SODIUM (DOCUSATE SODIUM) [Concomitant]
  9. HUMALOG [Concomitant]
  10. ALLOPURINOL [Concomitant]
  11. ULORIC [Suspect]
     Dates: start: 20090630

REACTIONS (1)
  - INFECTION [None]
